FAERS Safety Report 9931674 (Version 1)
Quarter: 2014Q1

REPORT INFORMATION
  Report Type: Spontaneous
  Country: US (occurrence: None)
  Receive Date: 20140224
  Receipt Date: 20140224
  Transmission Date: 20141002
  Serious: Yes (Death)
  Sender: FDA-Public Use
  Company Number: NL01PV14.35260

PATIENT
  Age: 52 Year
  Sex: Female

DRUGS (3)
  1. UNKNOWN (ZOLPIDEM) TABLET [Suspect]
  2. INSULIN (INSULIN) [Suspect]
  3. ACETAMINOPHEN (PARACETAMOL) [Suspect]

REACTIONS (4)
  - Completed suicide [None]
  - Exposure via ingestion [None]
  - Respiratory arrest [None]
  - Cardiac arrest [None]
